FAERS Safety Report 23145213 (Version 1)
Quarter: 2023Q4

REPORT INFORMATION
  Report Type: Report from Study
  Country: US (occurrence: None)
  Receive Date: 20231103
  Receipt Date: 20231103
  Transmission Date: 20240109
  Serious: Yes (Hospitalization)
  Sender: FDA-Public Use
  Company Number: 2023A245480

PATIENT
  Sex: Male

DRUGS (1)
  1. TAGRISSO [Suspect]
     Active Substance: OSIMERTINIB
     Indication: Adenocarcinoma
     Route: 048

REACTIONS (6)
  - Gastrointestinal disorder [Unknown]
  - Renal failure [Unknown]
  - Pleural effusion [Unknown]
  - Cardiac dysfunction [Unknown]
  - Asthenia [Unknown]
  - Dyspnoea [Unknown]
